FAERS Safety Report 19361848 (Version 3)
Quarter: 2022Q3

REPORT INFORMATION
  Report Type: Report from Study
  Country: IT (occurrence: IT)
  Receive Date: 20210603
  Receipt Date: 20220908
  Transmission Date: 20221027
  Serious: Yes (Other)
  Sender: FDA-Public Use
  Company Number: IT-ABBVIE-21K-083-3928582-00

PATIENT
  Age: 62 Year
  Sex: Male

DRUGS (2)
  1. CARBIDOPA\LEVODOPA [Suspect]
     Active Substance: CARBIDOPA\LEVODOPA
     Indication: Parkinson^s disease
     Dosage: DAILY DOSE: 1175MG, PUMP SETTING: MD: 6.5+3, CR: 2.7 (17H), ED: 2.5.
     Route: 050
     Dates: start: 20171024
  2. CARBIDOPA\LEVODOPA [Suspect]
     Active Substance: CARBIDOPA\LEVODOPA

REACTIONS (3)
  - Medical device site swelling [Recovered/Resolved]
  - Stoma site erythema [Recovered/Resolved]
  - Stoma site pain [Unknown]

NARRATIVE: CASE EVENT DATE: 20210501
